FAERS Safety Report 15495654 (Version 1)
Quarter: 2018Q4

REPORT INFORMATION
  Report Type: Report from Study
  Country: DE (occurrence: DE)
  Receive Date: 20181013
  Receipt Date: 20181013
  Transmission Date: 20190205
  Serious: Yes (Congenital Anomaly, Other)
  Sender: FDA-Public Use
  Company Number: DE-BRISTOL-MYERS SQUIBB COMPANY-BMS-2018-094664

PATIENT

DRUGS (1)
  1. METFORMIN HYDROCHLORIDE. [Suspect]
     Active Substance: METFORMIN HYDROCHLORIDE
     Indication: PRODUCT USED FOR UNKNOWN INDICATION
     Dosage: 1500 MG, QD
     Route: 064

REACTIONS (8)
  - Foetal exposure during pregnancy [Unknown]
  - Scrotal disorder [Unknown]
  - Atrial septal defect [Unknown]
  - Urethral valves [Unknown]
  - Premature baby [Unknown]
  - Adactyly [Unknown]
  - Dysmorphism [Unknown]
  - Hypospadias [Unknown]
